FAERS Safety Report 10313426 (Version 1)
Quarter: 2014Q3

REPORT INFORMATION
  Report Type: Spontaneous
  Country: US (occurrence: US)
  Receive Date: 20140718
  Receipt Date: 20140718
  Transmission Date: 20150326
  Serious: No
  Sender: FDA-Public Use
  Company Number: US-AMGEN INC.-USASP2014052869

PATIENT
  Age: 62 Year
  Sex: Female

DRUGS (3)
  1. TOPICORT                           /00370301/ [Concomitant]
     Indication: PRURITUS
     Dosage: UNK
  2. TOPICORT                           /00370301/ [Concomitant]
     Indication: RASH
  3. ENBREL [Suspect]
     Active Substance: ETANERCEPT
     Indication: RHEUMATOID ARTHRITIS
     Dosage: 50 MG, QWK
     Route: 065
     Dates: start: 20140527, end: 20140705

REACTIONS (6)
  - Rash erythematous [Not Recovered/Not Resolved]
  - Local swelling [Not Recovered/Not Resolved]
  - Throat tightness [Not Recovered/Not Resolved]
  - Injection site swelling [Not Recovered/Not Resolved]
  - Injection site bruising [Recovered/Resolved]
  - Injection site pruritus [Recovered/Resolved]

NARRATIVE: CASE EVENT DATE: 20140527
